FAERS Safety Report 9003572 (Version 1)
Quarter: 2013Q1

REPORT INFORMATION
  Report Type: Spontaneous
  Country: JP (occurrence: JP)
  Receive Date: 20130108
  Receipt Date: 20130108
  Transmission Date: 20140127
  Serious: Yes (Other)
  Sender: FDA-Public Use
  Company Number: PHHY2013JP001559

PATIENT
  Age: 4 Year
  Sex: Male

DRUGS (6)
  1. PHENYTOIN [Suspect]
  2. GABAPENTIN [Suspect]
  3. VALPROIC ACID [Suspect]
  4. CLONAZEPAM [Concomitant]
  5. RISPERIDONE [Concomitant]
  6. ZONISAMIDE [Concomitant]

REACTIONS (9)
  - Toxic epidermal necrolysis [Recovering/Resolving]
  - Pyrexia [Recovering/Resolving]
  - Rash erythematous [Recovering/Resolving]
  - Rash [Recovering/Resolving]
  - Lip erosion [Recovering/Resolving]
  - Nikolsky^s sign [Recovering/Resolving]
  - Dermatitis bullous [Recovering/Resolving]
  - Conjunctivitis [Recovering/Resolving]
  - Leukopenia [Recovering/Resolving]
